FAERS Safety Report 9340529 (Version 1)
Quarter: 2013Q2

REPORT INFORMATION
  Report Type: Spontaneous
  Country: US (occurrence: None)
  Receive Date: 20130610
  Receipt Date: 20130610
  Transmission Date: 20140414
  Serious: No
  Sender: FDA-Public Use
  Company Number: None

PATIENT
  Age: 28 Year
  Sex: Female
  Weight: 44.45 kg

DRUGS (1)
  1. MIRENA IUD BAYER [Suspect]

REACTIONS (12)
  - Haemorrhage [None]
  - Back pain [None]
  - Mood swings [None]
  - Muscle spasms [None]
  - Food craving [None]
  - Hypoaesthesia [None]
  - Mental impairment [None]
  - Subcutaneous abscess [None]
  - Partner stress [None]
  - Pain [None]
  - Intentional medical device removal by patient [None]
  - Ill-defined disorder [None]
